FAERS Safety Report 9005197 (Version 1)
Quarter: 2013Q1

REPORT INFORMATION
  Report Type: Report from Study
  Country: IR (occurrence: IR)
  Receive Date: 20130108
  Receipt Date: 20130108
  Transmission Date: 20140127
  Serious: Yes (Hospitalization, Other)
  Sender: FDA-Public Use
  Company Number: IR-COVIDIEN/TYCO HEALTHCARE/MALLINCKRODT-T201204459

PATIENT
  Age: 19 Year
  Sex: Male

DRUGS (1)
  1. TRAMADOL [Suspect]
     Indication: PRODUCT USED FOR UNKNOWN INDICATION
     Dosage: 4000 MG
     Route: 048

REACTIONS (2)
  - Apnoea [Unknown]
  - Intentional overdose [Unknown]
